FAERS Safety Report 5919150-3 (Version None)
Quarter: 2008Q3

REPORT INFORMATION
  Report Type: 
  Country: None (occurrence: None)
  Receive Date: 20080909
  Receipt Date: 20070207
  Transmission Date: 20090109
  Serious: Yes (Hospitalization)
  Sender: FDA-Public Use
  Company Number: 163-20785-07020369

PATIENT
  Age: 56 Year
  Sex: Female
  Weight: 64.8644 kg

DRUGS (2)
  1. THALOMID [Suspect]
     Indication: SCLERODERMA
     Dosage: 300 MG, HS, ORAL
     Route: 048
     Dates: start: 20060911
  2. NEXIUM [Concomitant]

REACTIONS (1)
  - PERICARDIAL EFFUSION [None]
